FAERS Safety Report 18676940 (Version 1)
Quarter: 2020Q4

REPORT INFORMATION
  Report Type: Spontaneous
  Country: MY (occurrence: MY)
  Receive Date: 20201229
  Receipt Date: 20201229
  Transmission Date: 20210114
  Serious: Yes (Other)
  Sender: FDA-Public Use
  Company Number: MY-MYLANLABS-2020M1104551

PATIENT
  Age: 65 Year
  Sex: Female

DRUGS (1)
  1. CELOVAN [Suspect]
     Active Substance: VANCOMYCIN
     Indication: INFECTION
     Dosage: 1.7 GRAM, QD
     Route: 042

REACTIONS (3)
  - Angioedema [Recovered/Resolved]
  - Pruritus [Recovered/Resolved]
  - Swelling face [Recovered/Resolved]
